FAERS Safety Report 4634215-4 (Version None)
Quarter: 2005Q2

REPORT INFORMATION
  Report Type: 
  Country: None (occurrence: None)
  Receive Date: 20050325
  Receipt Date: 20050206
  Transmission Date: 20051028
  Serious: No
  Sender: FDA-Public Use
  Company Number: USA030331087

PATIENT
  Age: 73 Year
  Sex: Female

DRUGS (1)
  1. FORTEO [Suspect]

REACTIONS (3)
  - ACCIDENTAL NEEDLE STICK [None]
  - ARTHRITIS [None]
  - INJECTION SITE HAEMORRHAGE [None]
